FAERS Safety Report 15094433 (Version 6)
Quarter: 2018Q4

REPORT INFORMATION
  Report Type: Spontaneous
  Country: FR (occurrence: FR)
  Receive Date: 20180630
  Receipt Date: 20181206
  Transmission Date: 20190204
  Serious: Yes (Life-Threatening, Hospitalization, Congenital Anomaly, Other)
  Sender: FDA-Public Use
  Company Number: FR-AUROBINDO-AUR-APL-2018-032977

PATIENT
  Age: 35 Week
  Sex: Male

DRUGS (4)
  1. PARACETAMOL [Suspect]
     Active Substance: ACETAMINOPHEN
     Indication: HEADACHE
     Dosage: 1 GRAM, FOUR TIMES/DAY, DURING THE FIRST WEEKS
     Route: 064
  2. FLECAINIDE [Suspect]
     Active Substance: FLECAINIDE
     Indication: SUPRAVENTRICULAR TACHYCARDIA
     Dosage: UNK
     Route: 064
  3. PARACETAMOL [Suspect]
     Active Substance: ACETAMINOPHEN
     Dosage: 1 GRAM, TOTAL
     Route: 064
  4. PARACETAMOL [Suspect]
     Active Substance: ACETAMINOPHEN
     Dosage: MAXIMUM DOSAGE OF 1 G EVERY 6 HOURS; THE MOTHER TOOK 1 G OF PARACETAMOL ONCE
     Route: 064

REACTIONS (12)
  - Tricuspid valve incompetence [Recovering/Resolving]
  - Ventricular hypertrophy [Unknown]
  - Supraventricular tachycardia [Unknown]
  - Right ventricular dilatation [Recovered/Resolved]
  - Premature baby [Unknown]
  - Dilatation ventricular [Recovering/Resolving]
  - Foetal exposure during pregnancy [Unknown]
  - Pulmonary arterial pressure decreased [Recovering/Resolving]
  - Ductus arteriosus premature closure [Recovering/Resolving]
  - Right ventricular hypertrophy [Recovering/Resolving]
  - Tachycardia foetal [Recovered/Resolved]
  - Bicuspid aortic valve [Recovering/Resolving]
